FAERS Safety Report 4449226-1 (Version None)
Quarter: 2004Q3

REPORT INFORMATION
  Report Type: 
  Country: None (occurrence: None)
  Receive Date: 20040910
  Receipt Date: 20040826
  Transmission Date: 20050211
  Serious: Yes (Life-Threatening, Hospitalization)
  Sender: FDA-Public Use
  Company Number: 2004-FF-00506FF

PATIENT
  Age: 29 Year
  Sex: Female

DRUGS (2)
  1. VIRAMUNE [Suspect]
     Indication: HIV INFECTION
     Dosage: PO;  DURING PREGNANCY
     Route: 048
     Dates: start: 20040624
  2. COMBIVIR [Concomitant]

REACTIONS (5)
  - AMNIOTIC CAVITY DISORDER [None]
  - CAESAREAN SECTION [None]
  - DRUG EXPOSURE DURING PREGNANCY [None]
  - FOETAL CARDIAC DISORDER [None]
  - PREMATURE BABY [None]
